FAERS Safety Report 4415623-3 (Version None)
Quarter: 2004Q2

REPORT INFORMATION
  Report Type: 
  Country: None (occurrence: None)
  Receive Date: 20040630
  Receipt Date: 20040121
  Transmission Date: 20050107
  Serious: Yes (Life-Threatening, Other)
  Sender: FDA-Public Use
  Company Number: 2004004446

PATIENT
  Age: 40 Year
  Sex: Female

DRUGS (2)
  1. ZOLOFT [Suspect]
     Indication: ANXIETY
     Dosage: ORAL
     Route: 048
     Dates: start: 20030101, end: 20030101
  2. ALL OTHER THERAPEUTIC PRODUCTS [Concomitant]

REACTIONS (4)
  - DEPRESSION [None]
  - NERVOUSNESS [None]
  - PANIC ATTACK [None]
  - SUICIDE ATTEMPT [None]
